FAERS Safety Report 9271176 (Version 3)
Quarter: 2013Q2

REPORT INFORMATION
  Report Type: Spontaneous
  Country: US (occurrence: US)
  Receive Date: 20130506
  Receipt Date: 20130514
  Transmission Date: 20140414
  Serious: Yes (Death, Other)
  Sender: FDA-Public Use
  Company Number: US-JNJFOC-20130500857

PATIENT
  Age: 75 Year
  Sex: Female
  Weight: 56.2 kg

DRUGS (1)
  1. XARELTO [Suspect]
     Indication: THROMBOSIS PROPHYLAXIS
     Route: 048
     Dates: start: 20130305, end: 20130311

REACTIONS (4)
  - Gastrointestinal haemorrhage [Fatal]
  - Epistaxis [Unknown]
  - Haemoptysis [Unknown]
  - Haemoglobin decreased [Unknown]
